FAERS Safety Report 8711226 (Version 3)
Quarter: 2013Q1

REPORT INFORMATION
  Report Type: Spontaneous
  Country: DK (occurrence: None)
  Receive Date: 20120723
  Receipt Date: 20121115
  Transmission Date: 20140127
  Serious: Yes (Life-Threatening, Other)
  Sender: FDA-Public Use
  Company Number: 2012MA008376

PATIENT
  Age: 49 Year
  Sex: Female

DRUGS (6)
  1. MIRTAZAPINE [Suspect]
     Indication: DEPRESSIVE SYMPTOM
     Route: 048
     Dates: start: 2006, end: 20120121
  2. TOPIRAMATE [Suspect]
     Indication: PSYCHOTIC DISORDER
     Route: 048
     Dates: start: 2007, end: 20120121
  3. CLOZARIL [Suspect]
     Indication: SCHIZOPHRENIA
     Route: 048
  4. ZOPICLONE [Concomitant]
  5. AMOXICILLIN [Concomitant]
  6. QUETIAPINE [Concomitant]

REACTIONS (9)
  - Platelet count decreased [None]
  - Road traffic accident [None]
  - Toothache [None]
  - Tooth infection [None]
  - Scratch [None]
  - Laceration [None]
  - Neutropenia [None]
  - White blood cell count decreased [None]
  - Neutrophil count decreased [None]
